FAERS Safety Report 9814454 (Version 1)
Quarter: 2014Q1

REPORT INFORMATION
  Report Type: Report from Study
  Country: DE (occurrence: DE)
  Receive Date: 20140113
  Receipt Date: 20140113
  Transmission Date: 20141002
  Serious: Yes (Other)
  Sender: FDA-Public Use
  Company Number: PHHY2014DE003113

PATIENT
  Sex: Male

DRUGS (3)
  1. FTY 720 [Suspect]
     Indication: MULTIPLE SCLEROSIS
     Dosage: 0.5 MG, QD
     Route: 048
     Dates: start: 20120619
  2. OCTOSTIM [Concomitant]
  3. CIALIS [Concomitant]
     Dosage: UNK
     Dates: start: 20120417

REACTIONS (1)
  - Suicidal ideation [Not Recovered/Not Resolved]
